FAERS Safety Report 13136865 (Version 2)
Quarter: 2017Q1

REPORT INFORMATION
  Report Type: Spontaneous
  Country: GR (occurrence: GR)
  Receive Date: 20170123
  Receipt Date: 20170217
  Transmission Date: 20170428
  Serious: Yes (Hospitalization, Other)
  Sender: FDA-Public Use
  Company Number: GR-GLAXOSMITHKLINE-GR2017GSK004212

PATIENT
  Age: 55 Year
  Sex: Female

DRUGS (4)
  1. LAMICTAL [Suspect]
     Active Substance: LAMOTRIGINE
     Indication: BIPOLAR DISORDER
     Dosage: 100 MG, BID
  2. LAMICTAL [Suspect]
     Active Substance: LAMOTRIGINE
     Dosage: 200 MG, TID
  3. XANAX [Suspect]
     Active Substance: ALPRAZOLAM
     Indication: BIPOLAR DISORDER
     Dosage: UNK
  4. MINITRAN [Suspect]
     Active Substance: NITROGLYCERIN
     Indication: BIPOLAR DISORDER
     Dosage: UNK

REACTIONS (7)
  - Dizziness [Recovered/Resolved]
  - Overdose [Unknown]
  - Balance disorder [Recovered/Resolved]
  - Wrong technique in product usage process [Unknown]
  - Confusional state [Recovered/Resolved]
  - Cerebrovascular accident [Unknown]
  - Intentional product use issue [Unknown]
